FAERS Safety Report 9238754 (Version 1)
Quarter: 2013Q2

REPORT INFORMATION
  Report Type: Spontaneous
  Country: US (occurrence: None)
  Receive Date: 20130417
  Receipt Date: 20130417
  Transmission Date: 20140414
  Serious: Yes (Other)
  Sender: FDA-Public Use
  Company Number: None

PATIENT
  Age: 89 Year
  Sex: Female
  Weight: 87.09 kg

DRUGS (1)
  1. NITROFURANTOIN MONOHYDRATE/ MACROCRYSTALLINE [Suspect]
     Indication: CYSTITIS
     Dosage: 100 ALVOSE  2XDAY  MOUTH
     Route: 048
     Dates: start: 20130322, end: 20130327

REACTIONS (2)
  - Swollen tongue [None]
  - Oedema mouth [None]
